FAERS Safety Report 9915633 (Version 1)
Quarter: 2014Q1

REPORT INFORMATION
  Report Type: Spontaneous
  Country: US (occurrence: None)
  Receive Date: 20140219
  Receipt Date: 20140219
  Transmission Date: 20141002
  Serious: Yes (Other)
  Sender: FDA-Public Use
  Company Number: None

PATIENT
  Age: 58 Year
  Sex: Female
  Weight: 101.61 kg

DRUGS (9)
  1. FLUCONAZOLE [Suspect]
     Indication: VULVOVAGINAL MYCOTIC INFECTION
     Dosage: 1 PILL
     Route: 048
     Dates: start: 20131225, end: 20131226
  2. LISINOPRIL [Concomitant]
  3. RANITIDINE [Concomitant]
  4. NITROUQUICK [Concomitant]
  5. ESCITALOPRAM [Concomitant]
  6. ADVAIR DISKUS [Concomitant]
  7. CLONAZEPAM [Concomitant]
  8. HYDROCODONE [Concomitant]
  9. GABAPENTIN [Concomitant]

REACTIONS (3)
  - Anaemia [None]
  - Type 2 diabetes mellitus [None]
  - Blood cholesterol increased [None]
